FAERS Safety Report 10152558 (Version 1)
Quarter: 2014Q2

REPORT INFORMATION
  Report Type: Spontaneous
  Country: US (occurrence: None)
  Receive Date: 20140502
  Receipt Date: 20140502
  Transmission Date: 20141212
  Serious: No
  Sender: FDA-Public Use
  Company Number: None

PATIENT
  Age: 59 Year
  Sex: Female
  Weight: 45.36 kg

DRUGS (4)
  1. SERTRALINE [Suspect]
     Indication: ANXIETY
     Dosage: 30 PILLS 1 PILL/DAY MOUTH
     Route: 048
     Dates: start: 20140321, end: 20140404
  2. CALCIUM [Concomitant]
  3. VITAMIN D [Concomitant]
  4. VITAMIN C [Concomitant]

REACTIONS (5)
  - Chest discomfort [None]
  - Dizziness [None]
  - Drug ineffective [None]
  - Palpitations [None]
  - Product quality issue [None]
